FAERS Safety Report 10043588 (Version 1)
Quarter: 2014Q1

REPORT INFORMATION
  Report Type: Spontaneous
  Country: US (occurrence: US)
  Receive Date: 20140328
  Receipt Date: 20140328
  Transmission Date: 20141002
  Serious: Yes (Other)
  Sender: FDA-Public Use
  Company Number: US-ASTELLAS-2014US003100

PATIENT
  Age: 67 Year
  Sex: Female

DRUGS (1)
  1. MYRBETRIQ [Suspect]
     Indication: PRODUCT USED FOR UNKNOWN INDICATION
     Dosage: 50 MG, UID/QD
     Route: 048
     Dates: start: 20131013, end: 20140321

REACTIONS (3)
  - Intentional drug misuse [Unknown]
  - Face lift [Recovering/Resolving]
  - Skin cosmetic procedure [Recovering/Resolving]
